FAERS Safety Report 5077800-0 (Version None)
Quarter: 2006Q3

REPORT INFORMATION
  Report Type: 
  Country: None (occurrence: None)
  Receive Date: 20060810
  Receipt Date: 20060629
  Transmission Date: 20061208
  Serious: Yes (Death, Hospitalization, Other)
  Sender: FDA-Public Use
  Company Number: JP-MERCK-0607USA00413

PATIENT
  Age: 70 Year
  Sex: Female
  Weight: 44 kg

DRUGS (14)
  1. PRIMAXIN [Suspect]
     Indication: SEPSIS
     Route: 042
     Dates: start: 20060615, end: 20060615
  2. DYPHYLLINE [Suspect]
     Indication: RESPIRATORY FAILURE
     Route: 051
     Dates: start: 20060613, end: 20060614
  3. FIRSTCIN [Concomitant]
     Indication: SEPSIS
     Route: 042
     Dates: start: 20060613, end: 20060614
  4. [THERAPY UNSPECIFIED] [Concomitant]
     Route: 065
     Dates: start: 20050613, end: 20060615
  5. METHYLMETHIONINE SULFONIUM CHLORIDE [Concomitant]
     Route: 065
     Dates: start: 20060601, end: 20060615
  6. [THERAPY UNSPECIFIED] [Concomitant]
     Route: 042
     Dates: start: 20060601, end: 20060615
  7. [THERAPY UNSPECIFIED] [Concomitant]
     Route: 042
     Dates: start: 20060613, end: 20060615
  8. CARBAZOCHROME SODIUM SULFONATE [Concomitant]
     Route: 042
     Dates: start: 20060601, end: 20060615
  9. [THERAPY UNSPECIFIED] [Concomitant]
     Route: 065
     Dates: start: 20060601, end: 20060615
  10. LASIX [Concomitant]
     Route: 042
     Dates: start: 20060601, end: 20060616
  11. PREDNISOLONE ACETATE [Concomitant]
     Route: 042
     Dates: start: 20060601, end: 20060615
  12. [THERAPY UNSPECIFIED] [Concomitant]
     Route: 065
     Dates: start: 20060613, end: 20060615
  13. TRANEXAMIC ACID [Concomitant]
     Route: 042
     Dates: start: 20060601, end: 20060615
  14. [THERAPY UNSPECIFIED] [Concomitant]
     Route: 065
     Dates: start: 20060601, end: 20060615

REACTIONS (2)
  - CONVULSION [None]
  - GASTRIC CANCER [None]
